FAERS Safety Report 15482644 (Version 1)
Quarter: 2018Q4

REPORT INFORMATION
  Report Type: Spontaneous
  Country: PL (occurrence: PL)
  Receive Date: 20181010
  Receipt Date: 20181010
  Transmission Date: 20190205
  Serious: Yes (Other)
  Sender: FDA-Public Use
  Company Number: PL-PFIZER INC-2018402790

PATIENT
  Age: 52 Year

DRUGS (1)
  1. SUNITINIB MALATE. [Suspect]
     Active Substance: SUNITINIB MALATE
     Indication: RENAL CELL CARCINOMA STAGE III
     Dosage: 50 MG, CYCLIC [ONCE DAILY (OD) FOR 28 DAYS, EVERY 6 WEEKS, 4 CYCLES WERE ADMINISTERED]
     Dates: start: 20110622

REACTIONS (10)
  - Oesophagitis [Unknown]
  - Skin reaction [Unknown]
  - Hypothyroidism [Unknown]
  - Granulocytopenia [Unknown]
  - Gastrooesophageal reflux disease [Unknown]
  - Leukopenia [Unknown]
  - Gastrointestinal haemorrhage [Unknown]
  - Thrombocytopenia [Unknown]
  - Gastritis [Unknown]
  - Neutropenia [Unknown]

NARRATIVE: CASE EVENT DATE: 20111110
